FAERS Safety Report 9263542 (Version 1)
Quarter: 2013Q2

REPORT INFORMATION
  Report Type: Report from Study
  Country: US (occurrence: US)
  Receive Date: 20130430
  Receipt Date: 20130430
  Transmission Date: 20140414
  Serious: Yes (Other)
  Sender: FDA-Public Use
  Company Number: US-ROCHE-1219879

PATIENT
  Sex: Female

DRUGS (2)
  1. RITUXAN [Suspect]
     Indication: RHEUMATOID ARTHRITIS
     Route: 065
  2. PREDNISONE [Concomitant]

REACTIONS (3)
  - Road traffic accident [Unknown]
  - Fatigue [Recovered/Resolved]
  - Rheumatoid arthritis [Not Recovered/Not Resolved]
